FAERS Safety Report 23052845 (Version 1)
Quarter: 2023Q4

REPORT INFORMATION
  Report Type: Spontaneous
  Country: DE (occurrence: DE)
  Receive Date: 20231011
  Receipt Date: 20231011
  Transmission Date: 20240110
  Serious: Yes (Hospitalization, Other)
  Sender: FDA-Public Use
  Company Number: DE-002147023-PHHY2018DE075653

PATIENT
  Sex: Female
  Weight: 75 kg

DRUGS (5)
  1. HYDROCORTISONE [Suspect]
     Active Substance: HYDROCORTISONE
     Indication: Product used for unknown indication
     Dosage: 10 MILLIGRAM/SQ. METER, ONCE A DAY ( BODY SURFACE)
     Route: 048
     Dates: start: 201305
  2. DOSTINEX [Suspect]
     Active Substance: CABERGOLINE
     Indication: Pituitary tumour benign
     Dosage: 7.5 MILLIGRAM, EVERY WEEK
     Route: 048
     Dates: start: 20130219, end: 201803
  3. SIGNIFOR LAR [Suspect]
     Active Substance: PASIREOTIDE PAMOATE
     Indication: Acromegaly
     Dosage: UNK
     Route: 065
  4. SIGNIFOR LAR [Suspect]
     Active Substance: PASIREOTIDE PAMOATE
     Indication: Pituitary tumour benign
     Dosage: 60 MG, EVERY 21 DAYS
     Route: 030
     Dates: start: 20140423
  5. LEVOTHYROXINE SODIUM [Concomitant]
     Active Substance: LEVOTHYROXINE SODIUM
     Indication: Hypopituitarism
     Dosage: 1 UNK, ONCE A DAY
     Route: 048
     Dates: start: 2013

REACTIONS (9)
  - Hypogonadism [Unknown]
  - Sleep disorder [Unknown]
  - Abdominal pain [Unknown]
  - Needle issue [Unknown]
  - Cataract [Recovering/Resolving]
  - Vitreous haemorrhage [Recovering/Resolving]
  - Inappropriate schedule of product administration [Unknown]
  - Product administered at inappropriate site [Unknown]
  - Product use issue [Unknown]

NARRATIVE: CASE EVENT DATE: 20150701
